FAERS Safety Report 15492470 (Version 1)
Quarter: 2018Q4

REPORT INFORMATION
  Report Type: Spontaneous
  Country: US (occurrence: US)
  Receive Date: 20181012
  Receipt Date: 20181012
  Transmission Date: 20190205
  Serious: No
  Sender: FDA-Public Use
  Company Number: US-PFIZER INC-2018407913

PATIENT
  Age: 38 Year
  Sex: Male
  Weight: 112.49 kg

DRUGS (2)
  1. CHANTIX [Suspect]
     Active Substance: VARENICLINE TARTRATE
     Indication: SMOKING CESSATION THERAPY
     Dosage: 1 MG, 2X/DAY
     Route: 048
     Dates: start: 20180923, end: 20180930
  2. VALTREX [Concomitant]
     Active Substance: VALACYCLOVIR HYDROCHLORIDE
     Indication: GENITAL HERPES SIMPLEX
     Dosage: UNK, 1X/DAY
     Dates: start: 2003

REACTIONS (6)
  - Hostility [Recovered/Resolved]
  - Irritability [Unknown]
  - Personality change [Recovered/Resolved]
  - Abnormal behaviour [Unknown]
  - Depressed mood [Recovered/Resolved]
  - Aggression [Recovered/Resolved]

NARRATIVE: CASE EVENT DATE: 20180930
